FAERS Safety Report 22396595 (Version 1)
Quarter: 2023Q2

REPORT INFORMATION
  Report Type: Spontaneous
  Country: US (occurrence: US)
  Receive Date: 20230601
  Receipt Date: 20230601
  Transmission Date: 20230722
  Serious: No
  Sender: FDA-Public Use
  Company Number: US-APIL-2314326US

PATIENT
  Age: 70 Year
  Sex: Female

DRUGS (3)
  1. LATISSE [Suspect]
     Active Substance: BIMATOPROST
     Indication: Growth of eyelashes
     Dosage: UNK UNK, QD
     Route: 003
     Dates: start: 2008, end: 20230509
  2. LISINOPRIL [Concomitant]
     Active Substance: LISINOPRIL
     Indication: Hypertension
  3. SIMVASTATIN [Concomitant]
     Active Substance: SIMVASTATIN
     Indication: Hypertension

REACTIONS (7)
  - Skin irritation [Unknown]
  - Pain of skin [Unknown]
  - Eyelid skin dryness [Unknown]
  - Eyelid exfoliation [Unknown]
  - Dry skin [Unknown]
  - Suspected product contamination [Unknown]
  - Product quality issue [Unknown]

NARRATIVE: CASE EVENT DATE: 20230401
